FAERS Safety Report 12270638 (Version 1)
Quarter: 2016Q2

REPORT INFORMATION
  Report Type: Spontaneous
  Country: US (occurrence: US)
  Receive Date: 20160415
  Receipt Date: 20160415
  Transmission Date: 20160815
  Serious: No
  Sender: FDA-Public Use
  Company Number: US-PFIZER INC-2016188352

PATIENT
  Age: 65 Year
  Sex: Male

DRUGS (1)
  1. IBRANCE [Suspect]
     Active Substance: PALBOCICLIB
     Indication: BREAST CANCER METASTATIC
     Dosage: UNK UNK, CYCLIC (STARTED IBRANCE FOR 3 WEEKS AT A TIME AND IS TAKEN OFF FOR 1 WEEK)
     Dates: start: 201602

REACTIONS (6)
  - Rash [Unknown]
  - Sciatica [Unknown]
  - Product use issue [Unknown]
  - Tendon pain [Unknown]
  - Pain in extremity [Unknown]
  - Nasopharyngitis [Unknown]

NARRATIVE: CASE EVENT DATE: 201602
